FAERS Safety Report 22524784 (Version 2)
Quarter: 2025Q3

REPORT INFORMATION
  Report Type: Spontaneous
  Country: US (occurrence: US)
  Receive Date: 20230606
  Receipt Date: 20250721
  Transmission Date: 20251020
  Serious: No
  Sender: SANOFI AVENTIS
  Company Number: US-SA-SAC20230601001333

PATIENT
  Age: 78 Year
  Sex: Male
  Weight: 88.45 kg

DRUGS (28)
  1. DUPIXENT [Suspect]
     Active Substance: DUPILUMAB
     Indication: Dermatitis atopic
     Dosage: 300 MG, QOW
     Route: 058
     Dates: start: 20221122
  2. ZYRTEC [Concomitant]
     Active Substance: CETIRIZINE HYDROCHLORIDE
  3. SUDAFED [Concomitant]
     Active Substance: PSEUDOEPHEDRINE HYDROCHLORIDE
  4. BUPROPION HYDROCHLORIDE [Concomitant]
     Active Substance: BUPROPION HYDROCHLORIDE
  5. FISH OIL [Concomitant]
     Active Substance: FISH OIL
  6. FLAXSEED [Concomitant]
     Active Substance: FLAX SEED
  7. LISINOPRIL [Concomitant]
     Active Substance: LISINOPRIL
  8. VITAMINS NOS [Concomitant]
     Active Substance: VITAMINS
  9. FLUOXETINE HYDROCHLORIDE [Concomitant]
     Active Substance: FLUOXETINE HYDROCHLORIDE
  10. VITAMIN D NOS [Concomitant]
     Active Substance: CHOLECALCIFEROL\ERGOCALCIFEROL
  11. VITAMIN K [Concomitant]
     Active Substance: PHYTONADIONE
  12. A-HYDROCORT [Concomitant]
     Active Substance: HYDROCORTISONE SODIUM SUCCINATE
  13. METHOTREXATE [Concomitant]
     Active Substance: METHOTREXATE
  14. MINOCYCLINE [Concomitant]
     Active Substance: MINOCYCLINE HYDROCHLORIDE
  15. VITAMINS [Concomitant]
     Active Substance: VITAMINS
  16. FISH OIL [Concomitant]
     Active Substance: FISH OIL
  17. LISINOPRIL [Concomitant]
     Active Substance: LISINOPRIL
  18. TACROLIMUS [Concomitant]
     Active Substance: TACROLIMUS
  19. LUTEIN [Concomitant]
     Active Substance: LUTEIN
  20. CLOBETASOL [Concomitant]
     Active Substance: CLOBETASOL
  21. HYDROXYZINE [Concomitant]
     Active Substance: HYDROXYZINE HYDROCHLORIDE
  22. Itch Relief [Concomitant]
  23. FLUOXETINE [Concomitant]
     Active Substance: FLUOXETINE HYDROCHLORIDE
  24. VITAMIN D3 [Concomitant]
     Active Substance: CHOLECALCIFEROL
  25. BETAMETHASONE [Concomitant]
     Active Substance: BETAMETHASONE
  26. ALENDRONATE [Concomitant]
     Active Substance: ALENDRONATE SODIUM
  27. CICLOPIROX [Concomitant]
     Active Substance: CICLOPIROX
  28. VITAMIN K [Concomitant]
     Active Substance: PHYTONADIONE

REACTIONS (3)
  - Eczema [Recovered/Resolved]
  - Incorrect dose administered [Unknown]
  - Drug ineffective [Unknown]

NARRATIVE: CASE EVENT DATE: 20230512
